FAERS Safety Report 6241898-4 (Version None)
Quarter: 2009Q2

REPORT INFORMATION
  Report Type: 
  Country: None (occurrence: None)
  Receive Date: 20090623
  Receipt Date: 20090611
  Transmission Date: 20091009
  Serious: Yes (Other)
  Sender: FDA-Public Use
  Company Number: GB-PFIZER INC-2009226024

PATIENT
  Age: 61 Year

DRUGS (1)
  1. CHAMPIX [Suspect]

REACTIONS (9)
  - ACUTE FEBRILE NEUTROPHILIC DERMATOSIS [None]
  - ACUTE GENERALISED EXANTHEMATOUS PUSTULOSIS [None]
  - CAPILLARITIS [None]
  - DRUG RASH WITH EOSINOPHILIA AND SYSTEMIC SYMPTOMS [None]
  - ESCHERICHIA URINARY TRACT INFECTION [None]
  - LEUKOCYTOCLASTIC VASCULITIS [None]
  - PUSTULAR PSORIASIS [None]
  - RENAL IMPAIRMENT [None]
  - URINARY TRACT INFECTION [None]
